FAERS Safety Report 5087723-9 (Version None)
Quarter: 2006Q3

REPORT INFORMATION
  Report Type: 
  Country: None (occurrence: None)
  Receive Date: 20060824
  Receipt Date: 20060814
  Transmission Date: 20061208
  Serious: Yes (Disabling, Other)
  Sender: FDA-Public Use
  Company Number: US-BRISTOL-MYERS SQUIBB COMPANY-13474234

PATIENT
  Age: 73 Year
  Sex: Male

DRUGS (1)
  1. MITOMYCIN [Suspect]
     Indication: BLADDER CANCER
     Route: 043

REACTIONS (3)
  - ACCIDENTAL EXPOSURE [None]
  - PRIAPISM [None]
  - SKIN NECROSIS [None]
